FAERS Safety Report 6245826-7 (Version None)
Quarter: 2009Q2

REPORT INFORMATION
  Report Type: 
  Country: None (occurrence: None)
  Receive Date: 20090624
  Receipt Date: 20090611
  Transmission Date: 20091009
  Serious: Yes (Other)
  Sender: FDA-Public Use
  Company Number: 236610K09USA

PATIENT
  Age: 55 Year
  Sex: Male

DRUGS (2)
  1. REBIF [Suspect]
     Indication: MULTIPLE SCLEROSIS
     Dosage: 44 MCG, 3 IN 1 WEEKS, SUBCUTANEOUS
     Route: 058
     Dates: start: 20050721, end: 20090501
  2. ZOLOFT [Concomitant]

REACTIONS (4)
  - BACK PAIN [None]
  - CONDITION AGGRAVATED [None]
  - DEPRESSION [None]
  - INFLUENZA LIKE ILLNESS [None]
